FAERS Safety Report 10474199 (Version 1)
Quarter: 2014Q3

REPORT INFORMATION
  Report Type: Spontaneous
  Country: US (occurrence: US)
  Receive Date: 20140924
  Receipt Date: 20140924
  Transmission Date: 20150326
  Serious: No
  Sender: FDA-Public Use
  Company Number: US-BAUSCH-SYM-2014-22080

PATIENT
  Sex: Female

DRUGS (1)
  1. EFUDEX [Suspect]
     Active Substance: FLUOROURACIL
     Indication: CAPILLARY FRAGILITY
     Route: 061

REACTIONS (2)
  - Medication error [Not Recovered/Not Resolved]
  - Application site discolouration [Not Recovered/Not Resolved]
